FAERS Safety Report 7379018-5 (Version None)
Quarter: 2011Q1

REPORT INFORMATION
  Report Type: 
  Country: None (occurrence: None)
  Receive Date: 20110328
  Receipt Date: 20110324
  Transmission Date: 20110831
  Serious: Yes (Hospitalization)
  Sender: FDA-Public Use
  Company Number: FR-GENZYME-CAMP-1001255

PATIENT
  Sex: Male

DRUGS (17)
  1. ZELITREX [Concomitant]
     Indication: PRODUCT USED FOR UNKNOWN INDICATION
     Dosage: UNK
     Route: 065
  2. LEXOMIL [Concomitant]
     Indication: PRODUCT USED FOR UNKNOWN INDICATION
     Dosage: UNK
     Route: 065
  3. CAMPATH [Suspect]
     Dosage: 20 MG, 2X/W
     Route: 042
     Dates: start: 20100801, end: 20100801
  4. OMIX [Concomitant]
     Indication: PRODUCT USED FOR UNKNOWN INDICATION
     Dosage: 0.4 MG, UNK
     Route: 065
  5. ROVALCYTE [Concomitant]
     Indication: PRODUCT USED FOR UNKNOWN INDICATION
     Dosage: UNK
     Route: 065
  6. CAMPATH [Suspect]
     Indication: PROLYMPHOCYTIC LEUKAEMIA
     Dosage: 30 MG, 3X/W
     Route: 042
     Dates: start: 20090209, end: 20090301
  7. BACTRIM [Suspect]
     Indication: PRODUCT USED FOR UNKNOWN INDICATION
     Dosage: 3 TBS/WEEK
     Route: 048
     Dates: start: 20100628, end: 20101220
  8. METFORMINE [Concomitant]
     Indication: PRODUCT USED FOR UNKNOWN INDICATION
     Dosage: UNK UNK, UNK
     Route: 065
  9. ACETAMINOPHEN [Concomitant]
     Indication: PRODUCT USED FOR UNKNOWN INDICATION
     Dosage: UNK
     Route: 065
  10. SPECIAFOLDINE [Concomitant]
     Indication: PRODUCT USED FOR UNKNOWN INDICATION
     Dosage: UNK
     Route: 065
  11. CAMPATH [Suspect]
     Dosage: 30 MG, 3X/W
     Route: 042
     Dates: start: 20100628, end: 20100801
  12. PASSIFLORE [Concomitant]
     Indication: PRODUCT USED FOR UNKNOWN INDICATION
     Dosage: UNK
     Route: 065
  13. REPAGLINIDE [Concomitant]
     Indication: PRODUCT USED FOR UNKNOWN INDICATION
     Dosage: 1 MG, UNK
     Route: 065
  14. CHONDROITIN [Concomitant]
     Indication: PRODUCT USED FOR UNKNOWN INDICATION
     Dosage: UNK
     Route: 065
  15. HARPAGOPHYTUM PROCUMBENS [Concomitant]
     Indication: ANALGESIC THERAPY
     Dosage: UNK
     Route: 065
  16. CAMPATH [Suspect]
     Dosage: 30 MG, 1X/W
     Route: 042
     Dates: start: 20100801, end: 20100920
  17. HARPAGOPHYTUM PROCUMBENS [Concomitant]
     Indication: OSTEOARTHRITIS

REACTIONS (1)
  - ANAEMIA HAEMOLYTIC AUTOIMMUNE [None]
